FAERS Safety Report 17238279 (Version 1)
Quarter: 2020Q1

REPORT INFORMATION
  Report Type: Spontaneous
  Country: US (occurrence: US)
  Receive Date: 20200106
  Receipt Date: 20200106
  Transmission Date: 20200409
  Serious: No
  Sender: FDA-Public Use
  Company Number: US-IBSA PHARMA-TSO-2019-0120

PATIENT
  Age: 67 Year
  Sex: Female
  Weight: 45.85 kg

DRUGS (2)
  1. TIROSINT-SOL [Suspect]
     Active Substance: LEVOTHYROXINE SODIUM
     Indication: AUTOIMMUNE THYROIDITIS
     Dosage: 75MCG/ML DAILY
     Route: 048
     Dates: start: 201903
  2. TIROSINT-SOL [Suspect]
     Active Substance: LEVOTHYROXINE SODIUM
     Indication: AUTOIMMUNE THYROIDITIS

REACTIONS (15)
  - Crying [Unknown]
  - Arthralgia [Unknown]
  - Back pain [Unknown]
  - Dysuria [Unknown]
  - Headache [Unknown]
  - Tremor [Unknown]
  - Hyperhidrosis [Unknown]
  - Insomnia [Unknown]
  - Weight decreased [Unknown]
  - Feeling hot [Unknown]
  - Psychomotor hyperactivity [Unknown]
  - Renal pain [Unknown]
  - Vision blurred [Unknown]
  - Anxiety [Unknown]
  - Drug level above therapeutic [Unknown]

NARRATIVE: CASE EVENT DATE: 2019
